FAERS Safety Report 7599316-X (Version None)
Quarter: 2011Q3

REPORT INFORMATION
  Report Type: 
  Country: None (occurrence: None)
  Receive Date: 20110711
  Receipt Date: 20091113
  Transmission Date: 20111222
  Serious: Yes (Death, Other)
  Sender: FDA-Public Use
  Company Number: US-BAYER-200939783NA

PATIENT
  Age: 57 Year
  Sex: Male
  Weight: 95.692 kg

DRUGS (31)
  1. TERAZOSIN HCL [Concomitant]
     Dosage: 2 MG, QD
     Route: 048
  2. LEVOPHED [Concomitant]
     Dosage: 4MG/250ML
     Route: 042
     Dates: start: 20050408
  3. TEQUIN [Concomitant]
     Dosage: 400 MG, QD X10 DAYS
     Route: 048
     Dates: start: 20050311
  4. FOSINOPRIL SODIUM [Concomitant]
     Dosage: 40 MG, QD
     Route: 048
     Dates: start: 20000101, end: 20050101
  5. PROPOFOL [Concomitant]
     Dosage: UNK
     Route: 042
     Dates: start: 20050408, end: 20050408
  6. ZINACEF [Concomitant]
     Dosage: 3 G, UNK
     Route: 042
     Dates: start: 20050408
  7. LEVOPHED [Concomitant]
     Dosage: 5-10ML/HOUR
     Dates: end: 20050408
  8. TRASYLOL [Suspect]
     Indication: CORONARY ARTERY BYPASS
     Dosage: 1 ML, ONCE TEST DOSE
     Route: 042
     Dates: start: 20050408, end: 20050408
  9. AMITRIPTYLINE HCL [Concomitant]
     Dosage: 25 MG, BID
     Route: 048
  10. TERAZOSIN HCL [Concomitant]
     Dosage: 2 MG, HS
     Route: 048
     Dates: start: 19940101, end: 20050101
  11. PLAVIX [Concomitant]
     Route: 048
  12. FENTANYL [Concomitant]
     Dosage: 800 MCG
     Route: 042
     Dates: start: 20050408
  13. PROPOFOL [Concomitant]
     Dosage: 112 MG, UNK
     Route: 042
     Dates: start: 20050408
  14. PROTAMINE SULFATE [Concomitant]
     Dosage: 370 MG, UNK
     Route: 042
     Dates: start: 20050408
  15. TRASYLOL [Suspect]
     Dosage: 200 ML PRIME
     Dates: start: 20050408, end: 20050408
  16. TRASYLOL [Suspect]
     Dosage: 50 ML PER HOUR FOR APPROXIMATELY 3 HOURS
     Route: 042
     Dates: start: 20050408, end: 20050408
  17. HEPARIN [Concomitant]
     Dosage: UNK
  18. TERAZOSIN HCL [Concomitant]
     Route: 048
  19. TOPROL-XL [Concomitant]
     Dosage: 25 MG, QD
     Route: 048
  20. MIDAZOLAM HCL [Concomitant]
     Dosage: UNK
     Route: 042
     Dates: start: 20050408, end: 20050408
  21. PROTAMINE SULFATE [Concomitant]
     Dosage: UNK
     Route: 042
     Dates: start: 20050408, end: 20050408
  22. TRASYLOL [Suspect]
     Dosage: 200 ML LOADING DOSE
     Route: 042
     Dates: start: 20050408, end: 20050408
  23. ACETYLSALICYLIC ACID SRT [Concomitant]
     Route: 048
  24. TOPROL-XL [Concomitant]
     Dosage: 40 MG, QD
     Route: 048
     Dates: start: 20000101, end: 20050101
  25. FENTANYL [Concomitant]
     Dosage: 1 MG, UNK
     Route: 042
     Dates: start: 20050408, end: 20050408
  26. ZINACEF [Concomitant]
     Dosage: 1.5G TIMES TWO DOSES
     Route: 042
     Dates: start: 20050408, end: 20050408
  27. AMITRIPTYLINE HCL [Concomitant]
     Indication: AFFECTIVE DISORDER
     Dosage: 25 MG, QD
     Route: 048
  28. FOSINOPRIL SODIUM [Concomitant]
     Route: 048
  29. TOPROL-XL [Concomitant]
     Dosage: 25 MG, QD
     Route: 048
  30. HEPARIN [Concomitant]
     Dosage: 25000 U, UNK
     Route: 042
     Dates: start: 20050408
  31. MIDAZOLAM HCL [Concomitant]
     Dosage: 10 MG, UNK
     Route: 042
     Dates: start: 20050408

REACTIONS (13)
  - MYOCARDIAL INFARCTION [None]
  - PAIN [None]
  - ANXIETY [None]
  - RENAL INJURY [None]
  - RENAL FAILURE [None]
  - RENAL IMPAIRMENT [None]
  - INJURY [None]
  - EMOTIONAL DISTRESS [None]
  - ANHEDONIA [None]
  - DEATH [None]
  - FEAR [None]
  - STRESS [None]
  - UNEVALUABLE EVENT [None]
